FAERS Safety Report 5078087-5 (Version None)
Quarter: 2006Q3

REPORT INFORMATION
  Report Type: 
  Country: None (occurrence: None)
  Receive Date: 20060720
  Receipt Date: 20060221
  Transmission Date: 20061208
  Serious: Yes (Other)
  Sender: FDA-Public Use
  Company Number: 2006MP000314

PATIENT
  Age: 82 Year
  Sex: Male

DRUGS (6)
  1. AGGRASTAT [Suspect]
     Indication: CORONARY ANGIOPLASTY
     Dosage: IV
     Route: 042
     Dates: start: 20060203, end: 20060205
  2. HEPARIN [Suspect]
     Indication: CORONARY ANGIOPLASTY
     Dosage: 6000 U;IV
     Route: 042
     Dates: start: 20060203, end: 20060203
  3. ASPIRIN [Concomitant]
  4. CARBAMAZEPINE [Concomitant]
  5. LORAZEPAM [Concomitant]
  6. NITROGLYCERIN [Concomitant]

REACTIONS (1)
  - THROMBOCYTOPENIA [None]
